FAERS Safety Report 8833234 (Version 2)
Quarter: 2012Q4

REPORT INFORMATION
  Report Type: 
  Country: PE (occurrence: PE)
  Receive Date: 20121010
  Receipt Date: 20121015
  Transmission Date: 20130627
  Serious: Yes (Death)
  Sender: FDA-Public Use
  Company Number: PHHY2012PE089035

PATIENT
  Age: 86 Year

DRUGS (3)
  1. EXELON PATCH [Suspect]
     Indication: DEMENTIA ALZHEIMER^S TYPE
     Dosage: 9.5 mg, daily
     Route: 062
     Dates: start: 201208
  2. ASPIRIN ^BAYER^ [Concomitant]
  3. LOSARTAN [Concomitant]

REACTIONS (1)
  - Sudden death [Fatal]
